FAERS Safety Report 23276591 (Version 10)
Quarter: 2024Q1

REPORT INFORMATION
  Report Type: Spontaneous
  Country: US (occurrence: US)
  Receive Date: 20231208
  Receipt Date: 20240125
  Transmission Date: 20240410
  Serious: Yes (Hospitalization, Other)
  Sender: FDA-Public Use
  Company Number: US-PFIZER INC-PV202300106959

PATIENT
  Age: 84 Year
  Sex: Male
  Weight: 108.9 kg

DRUGS (4)
  1. BOSULIF [Suspect]
     Active Substance: BOSUTINIB MONOHYDRATE
     Indication: Chronic myeloid leukaemia
     Dosage: 400 MG, DAILY
     Route: 048
     Dates: start: 20230609
  2. BOSULIF [Suspect]
     Active Substance: BOSUTINIB MONOHYDRATE
     Dosage: 300 MG (THREE TABLETS OF 100 MG), DAILY
     Route: 048
  3. BOSULIF [Suspect]
     Active Substance: BOSUTINIB MONOHYDRATE
     Dosage: 200 MG (2 TABLETS OF 100 MG), DAILY (AT DINNER)
     Route: 048
  4. INSPRA [Concomitant]
     Active Substance: EPLERENONE
     Dosage: 25 MG, DAILY
     Route: 048
     Dates: start: 20230601

REACTIONS (3)
  - Road traffic accident [Recovering/Resolving]
  - Neutropenia [Not Recovered/Not Resolved]
  - Full blood count abnormal [Unknown]
